FAERS Safety Report 16541499 (Version 1)
Quarter: 2019Q3

REPORT INFORMATION
  Report Type: Spontaneous
  Country: FR (occurrence: FR)
  Receive Date: 20190708
  Receipt Date: 20190708
  Transmission Date: 20191004
  Serious: Yes (Hospitalization)
  Sender: FDA-Public Use
  Company Number: FR-SA-2019SA179263

PATIENT
  Age: 59 Year
  Sex: Male
  Weight: 95 kg

DRUGS (6)
  1. HYDROCORTISONE. [Suspect]
     Active Substance: HYDROCORTISONE
     Indication: PRODUCT USED FOR UNKNOWN INDICATION
     Dosage: UNK UNK, UNK
     Route: 051
     Dates: start: 20180613, end: 20180620
  2. KEPPRA [Concomitant]
     Active Substance: LEVETIRACETAM
     Indication: PRODUCT USED FOR UNKNOWN INDICATION
     Dosage: UNK
     Route: 065
  3. KARDEGIC [Suspect]
     Active Substance: ASPIRIN DL-LYSINE
     Indication: TRANSIENT ISCHAEMIC ATTACK
     Dosage: UNK UNK, UNK
     Route: 048
  4. ARGANOVA [Suspect]
     Active Substance: ARGATROBAN
     Indication: THROMBOSIS PROPHYLAXIS
     Dosage: UNK UNK, UNK
     Route: 042
     Dates: start: 20180617, end: 20180620
  5. EUPANTOL [Concomitant]
     Active Substance: PANTOPRAZOLE SODIUM
     Indication: PRODUCT USED FOR UNKNOWN INDICATION
     Dosage: UNK
     Route: 065
  6. INSULINE [INSULIN PORCINE] [Concomitant]
     Indication: PRODUCT USED FOR UNKNOWN INDICATION
     Dosage: UNK
     Route: 065

REACTIONS (2)
  - Anaemia [Recovering/Resolving]
  - Abdominal wall haematoma [Recovering/Resolving]

NARRATIVE: CASE EVENT DATE: 20180620
